FAERS Safety Report 21572317 (Version 1)
Quarter: 2022Q4

REPORT INFORMATION
  Report Type: Spontaneous
  Country: US (occurrence: None)
  Receive Date: 20221108
  Receipt Date: 20221108
  Transmission Date: 20230112
  Serious: Yes (Life-Threatening, Hospitalization, Disabling, Other)
  Sender: FDA-Public Use
  Company Number: None

PATIENT
  Age: 63 Year
  Sex: Female
  Weight: 58.5 kg

DRUGS (2)
  1. BONIVA [Suspect]
     Active Substance: IBANDRONATE SODIUM
     Indication: Osteopenia
     Dosage: OTHER QUANTITY : 1 TABLET(S);?OTHER FREQUENCY : MONTHLY;?
     Route: 048
     Dates: start: 20120901, end: 20220224
  2. FORTEO [Concomitant]
     Active Substance: TERIPARATIDE

REACTIONS (3)
  - Femur fracture [None]
  - Clavicle fracture [None]
  - Fall [None]

NARRATIVE: CASE EVENT DATE: 20220224
